FAERS Safety Report 19118786 (Version 1)
Quarter: 2021Q2

REPORT INFORMATION
  Report Type: Other
  Country: CN (occurrence: CN)
  Receive Date: 20210409
  Receipt Date: 20210409
  Transmission Date: 20210717
  Serious: Yes (Hospitalization)
  Sender: FDA-Public Use
  Company Number: CN-B.BRAUN MEDICAL INC.-2109161

PATIENT
  Sex: Female

DRUGS (3)
  1. GENERAL ANESTHESIA: PROPOFOL/REMIFENTANIL/SEVOFLURANE [Concomitant]
  2. LIDOCAINE HYDROCHLORIDE. [Suspect]
     Active Substance: LIDOCAINE HYDROCHLORIDE
     Indication: ARRHYTHMIA
  3. CARDIAC DRUGS: DOPAMINE/DOBUTAMINE AND NOREPINEPHRINE [Concomitant]

REACTIONS (1)
  - Drug ineffective [None]
